FAERS Safety Report 6237820-7 (Version None)
Quarter: 2009Q2

REPORT INFORMATION
  Report Type: 
  Country: None (occurrence: None)
  Receive Date: 20090617
  Receipt Date: 20090609
  Transmission Date: 20091009
  Serious: Yes (Other)
  Sender: FDA-Public Use
  Company Number: CHPA2009US13408

PATIENT
  Age: 70 Year
  Sex: Female

DRUGS (1)
  1. EX-LAX REG STR CHOCOLATED LAX PCS SEN (NCH) (SENNA GLYCOSIDES (CA SALT [Suspect]
     Indication: LAXATIVE SUPPORTIVE CARE
     Dosage: 45 MG, QHS, ORAL
     Route: 048
     Dates: start: 20090602, end: 20090608

REACTIONS (3)
  - CONCOMITANT DISEASE AGGRAVATED [None]
  - CONVULSION [None]
  - INCORRECT DOSE ADMINISTERED [None]
